FAERS Safety Report 22288535 (Version 1)
Quarter: 2023Q2

REPORT INFORMATION
  Report Type: Report from Study
  Country: GB (occurrence: GB)
  Receive Date: 20230505
  Receipt Date: 20230505
  Transmission Date: 20230722
  Serious: Yes (Other)
  Sender: FDA-Public Use
  Company Number: GB-002147023-NVSC2022GB194532

PATIENT
  Age: 38 Year
  Sex: Female

DRUGS (4)
  1. KESIMPTA [Suspect]
     Active Substance: OFATUMUMAB
     Indication: Relapsing-remitting multiple sclerosis
     Dosage: 20 MG, QMO
     Route: 058
     Dates: start: 20220825
  2. KESIMPTA [Suspect]
     Active Substance: OFATUMUMAB
     Dosage: 20 MG, QMO OTHER (CURRENTLY ON TITRATION DOSE, THIRD DOSE OF INITIAL TITRATION PERIOD)
     Route: 058
  3. KESIMPTA [Suspect]
     Active Substance: OFATUMUMAB
     Dosage: 20 MG, QMO
     Route: 058
     Dates: start: 20220922
  4. KESIMPTA [Suspect]
     Active Substance: OFATUMUMAB
     Dosage: 20 MG, OTHER TITRATION DOSE
     Route: 058
     Dates: start: 20221111

REACTIONS (37)
  - Tachycardia [Recovered/Resolved]
  - Nausea [Recovered/Resolved]
  - Nausea [Recovered/Resolved]
  - Headache [Not Recovered/Not Resolved]
  - Emotional distress [Unknown]
  - Fatigue [Not Recovered/Not Resolved]
  - Multiple sclerosis relapse [Unknown]
  - Hypoaesthesia [Unknown]
  - Trigeminal neuralgia [Unknown]
  - Tachycardia [Recovered/Resolved with Sequelae]
  - Tachycardia [Recovered/Resolved]
  - Tachycardia [Not Recovered/Not Resolved]
  - Pain in jaw [Unknown]
  - Palpitations [Recovered/Resolved]
  - Anxiety [Recovered/Resolved]
  - Skin infection [Recovered/Resolved]
  - Alopecia [Recovered/Resolved]
  - Feeling abnormal [Recovered/Resolved]
  - Vomiting [Recovered/Resolved]
  - Urinary tract infection [Recovered/Resolved]
  - Palpitations [Recovered/Resolved]
  - Tooth abscess [Not Recovered/Not Resolved]
  - Oral candidiasis [Recovering/Resolving]
  - Vulvovaginal candidiasis [Recovering/Resolving]
  - Injection related reaction [Not Recovered/Not Resolved]
  - Pruritus [Recovered/Resolved]
  - Nervousness [Recovered/Resolved]
  - Lower respiratory tract infection [Unknown]
  - Palpitations [Recovered/Resolved with Sequelae]
  - Presyncope [Unknown]
  - Tremor [Unknown]
  - Palpitations [Not Recovered/Not Resolved]
  - Anxiety [Not Recovered/Not Resolved]
  - Heart rate increased [Recovered/Resolved]
  - Heart rate increased [Recovered/Resolved]
  - Blood pressure increased [Recovered/Resolved with Sequelae]
  - Drug tolerance decreased [Unknown]

NARRATIVE: CASE EVENT DATE: 20220825
